FAERS Safety Report 25661963 (Version 1)
Quarter: 2025Q3

REPORT INFORMATION
  Report Type: Spontaneous
  Country: EU (occurrence: EU)
  Receive Date: 20250809
  Receipt Date: 20250809
  Transmission Date: 20251021
  Serious: Yes (Death, Hospitalization, Other)
  Sender: MACLEODS
  Company Number: EU-MLMSERVICE-20230420-4238769-1

PATIENT

DRUGS (4)
  1. ACYCLOVIR [Suspect]
     Active Substance: ACYCLOVIR
     Indication: Herpes simplex encephalitis
     Route: 065
     Dates: start: 2021
  2. ACYCLOVIR [Suspect]
     Active Substance: ACYCLOVIR
     Route: 065
     Dates: start: 2021
  3. ACYCLOVIR [Suspect]
     Active Substance: ACYCLOVIR
     Dosage: DOSE REDUCTION
     Route: 065
     Dates: start: 2021
  4. MYCOPHENOLATE MOFETIL [Suspect]
     Active Substance: MYCOPHENOLATE MOFETIL
     Indication: Prophylaxis against transplant rejection
     Route: 065

REACTIONS (7)
  - Death [Fatal]
  - Myoclonus [Recovered/Resolved]
  - Confusional state [Unknown]
  - Antiviral drug level above therapeutic [Recovered/Resolved]
  - Drug interaction [Recovered/Resolved]
  - Neurotoxicity [Recovered/Resolved]
  - Overdose [Unknown]

NARRATIVE: CASE EVENT DATE: 20210101
